FAERS Safety Report 18979871 (Version 1)
Quarter: 2021Q1

REPORT INFORMATION
  Report Type: Report from Study
  Country: CA (occurrence: CA)
  Receive Date: 20210308
  Receipt Date: 20210308
  Transmission Date: 20210420
  Serious: Yes (Other)
  Sender: FDA-Public Use
  Company Number: NVSC2021CA043250

PATIENT
  Age: 32 Year
  Sex: Female

DRUGS (3)
  1. COSENTYX [Suspect]
     Active Substance: SECUKINUMAB
     Indication: ANKYLOSING SPONDYLITIS
     Dosage: 300 MG, QMO
     Route: 058
     Dates: start: 20201121
  2. PREDNISONE. [Concomitant]
     Active Substance: PREDNISONE
     Indication: PRODUCT USED FOR UNKNOWN INDICATION
     Dosage: UNK, QD
     Route: 048
     Dates: start: 202004
  3. ESCITALOPRAM [Concomitant]
     Active Substance: ESCITALOPRAM OXALATE
     Indication: DEPRESSION
     Dosage: UNK, QD
     Route: 048
     Dates: start: 201804

REACTIONS (5)
  - Tenosynovitis [Unknown]
  - Ankylosing spondylitis [Unknown]
  - Arthralgia [Unknown]
  - Rotator cuff syndrome [Unknown]
  - Tendonitis [Unknown]

NARRATIVE: CASE EVENT DATE: 20210219
